FAERS Safety Report 7958775-0 (Version None)
Quarter: 2011Q4

REPORT INFORMATION
  Report Type: 
  Country: None (occurrence: None)
  Receive Date: 20111206
  Receipt Date: 20111129
  Transmission Date: 20120403
  Serious: Yes (Death)
  Sender: FDA-Public Use
  Company Number: CA-PERRIGO-11CA010470

PATIENT
  Sex: Male

DRUGS (1)
  1. IBUPROFEN [Suspect]
     Indication: PRODUCT USED FOR UNKNOWN INDICATION
     Dosage: UNK
     Route: 050

REACTIONS (5)
  - MATERNAL DRUGS AFFECTING FOETUS [None]
  - CEREBRAL HAEMORRHAGE FOETAL [None]
  - STILLBIRTH [None]
  - HAEMORRHAGE INTRACRANIAL [None]
  - ABORTION INDUCED [None]
